FAERS Safety Report 17638251 (Version 1)
Quarter: 2020Q2

REPORT INFORMATION
  Report Type: Spontaneous
  Country: US (occurrence: US)
  Receive Date: 20200407
  Receipt Date: 20200407
  Transmission Date: 20200713
  Serious: Yes (Death)
  Sender: FDA-Public Use
  Company Number: None

PATIENT
  Age: 77 Year
  Sex: Male
  Weight: 59.4 kg

DRUGS (7)
  1. ABIRATERONE. [Suspect]
     Active Substance: ABIRATERONE ACETATE
     Indication: PROSTATIC DISORDER
     Route: 048
     Dates: start: 20181119, end: 20191101
  2. ZYTIGA [Suspect]
     Active Substance: ABIRATERONE ACETATE
     Indication: PROSTATIC DISORDER
     Route: 048
     Dates: start: 20171214, end: 20181120
  3. ABIRATERONE 250MG, ORAL [Concomitant]
     Dates: start: 20181119, end: 20200407
  4. FLOMAX 0.4 MG, ORAL [Concomitant]
     Dates: end: 20200407
  5. ZYTIGA 250MG, ORAL [Concomitant]
     Dates: start: 20171214, end: 20181120
  6. PREDNISONE 5MG, ORAL [Concomitant]
  7. XVEGA 120MG/1.7ML, SQ [Concomitant]
     Dates: start: 20180403, end: 20200407

REACTIONS (1)
  - Death [None]

NARRATIVE: CASE EVENT DATE: 20200407
